FAERS Safety Report 13529951 (Version 1)
Quarter: 2017Q2

REPORT INFORMATION
  Report Type: Spontaneous
  Country: US (occurrence: US)
  Receive Date: 20170509
  Receipt Date: 20170509
  Transmission Date: 20170830
  Serious: No
  Sender: FDA-Public Use
  Company Number: US-ROCHE-GNE293258

PATIENT
  Age: 32 Year
  Sex: Female
  Weight: 54.48 kg

DRUGS (1)
  1. XOLAIR [Suspect]
     Active Substance: OMALIZUMAB
     Indication: ASTHMA
     Dosage: 1.2 /MM3, 1/MONTH, DOSE=1.2 /MM3, DAILY DOSE=.04 /MM3, TOTAL DOSE=1 /MM3
     Route: 058
     Dates: start: 20091023

REACTIONS (2)
  - Pain in extremity [None]
  - Paraesthesia [Recovered/Resolved]

NARRATIVE: CASE EVENT DATE: 20091024
